FAERS Safety Report 4643587-6 (Version None)
Quarter: 2005Q2

REPORT INFORMATION
  Report Type: 
  Country: None (occurrence: None)
  Receive Date: 20050425
  Receipt Date: 20041221
  Transmission Date: 20051028
  Serious: Yes (Hospitalization)
  Sender: FDA-Public Use
  Company Number: JP-BOEHRINGER INGELHEIM PHARMACEUTICALS, INC.-2004-BP-14357NB

PATIENT
  Sex: Female

DRUGS (7)
  1. MICARDIS [Suspect]
     Indication: ESSENTIAL HYPERTENSION
     Route: 048
     Dates: start: 20040220, end: 20041015
  2. MEXITIL [Suspect]
     Indication: VENTRICULAR EXTRASYSTOLES
     Route: 048
     Dates: start: 20030525
  3. SPELEAR [Suspect]
     Indication: BRONCHITIS CHRONIC
     Route: 048
     Dates: start: 20030905
  4. NEUQUINON [Concomitant]
     Indication: CARDIAC FAILURE CONGESTIVE
     Route: 048
     Dates: start: 20040307
  5. PURSENNID [Concomitant]
     Indication: CONSTIPATION
     Route: 048
     Dates: start: 20031003
  6. DASEN [Concomitant]
     Indication: BRONCHITIS CHRONIC
     Route: 048
     Dates: start: 20040620
  7. SHIMBU-TO [Concomitant]
     Indication: GASTRITIS
     Route: 048
     Dates: start: 20041001, end: 20041016

REACTIONS (1)
  - VERTIGO [None]
